FAERS Safety Report 5509695-2 (Version None)
Quarter: 2007Q4

REPORT INFORMATION
  Report Type: 
  Country: None (occurrence: None)
  Receive Date: 20071107
  Receipt Date: 20071107
  Transmission Date: 20080405
  Serious: No
  Sender: FDA-Public Use
  Company Number: None

PATIENT

DRUGS (1)
  1. SIMVASTATIN 80MG TABLETS TEVA [Suspect]
     Dates: start: 20071001, end: 20071030

REACTIONS (1)
  - PHARMACEUTICAL PRODUCT COMPLAINT [None]
